FAERS Safety Report 4363633-7 (Version None)
Quarter: 2004Q2

REPORT INFORMATION
  Report Type: 
  Country: None (occurrence: None)
  Receive Date: 20040524
  Receipt Date: 20040524
  Transmission Date: 20050107
  Serious: Yes (Death, Hospitalization)
  Sender: FDA-Public Use
  Company Number: None

PATIENT
  Age: 87 Year
  Sex: Female

DRUGS (4)
  1. AVELOX [Suspect]
     Indication: PNEUMONIA
     Dosage: 400 MG QD INTRAVENOUS
     Route: 042
     Dates: start: 20040413, end: 20040416
  2. IMIPENEM/CILASTATIN [Concomitant]
  3. HEPARIN [Concomitant]
  4. DOPAMINE HCL [Concomitant]

REACTIONS (2)
  - ALANINE AMINOTRANSFERASE INCREASED [None]
  - ASPARTATE AMINOTRANSFERASE INCREASED [None]
